FAERS Safety Report 10157347 (Version 2)
Quarter: 2014Q2

REPORT INFORMATION
  Report Type: Report from Study
  Country: CH (occurrence: CH)
  Receive Date: 20140507
  Receipt Date: 20140507
  Transmission Date: 20141212
  Serious: Yes (Death, Life-Threatening, Hospitalization)
  Sender: FDA-Public Use
  Company Number: CH-SA-CLOF-1002287

PATIENT
  Age: 53 Year
  Sex: Female
  Weight: 61 kg

DRUGS (4)
  1. CLOFARABINE [Suspect]
     Indication: ACUTE MYELOID LEUKAEMIA
     Dosage: 15.7 MG, UNK
     Route: 042
     Dates: start: 20120808, end: 20120812
  2. CLOFARABINE [Suspect]
     Indication: ACUTE MYELOID LEUKAEMIA
     Dosage: 5 X 314 MG
     Route: 042
  3. IDARUBICIN [Suspect]
     Indication: ACUTE MYELOID LEUKAEMIA
     Dosage: 18.8 MG, UNK
     Route: 042
     Dates: start: 20120808, end: 20120810
  4. CYTARABINE [Suspect]
     Indication: ACUTE MYELOID LEUKAEMIA
     Dosage: 314 MG, UNK
     Route: 042
     Dates: start: 20120808, end: 20120815

REACTIONS (2)
  - Cerebral haemorrhage [Fatal]
  - Septic shock [Not Recovered/Not Resolved]
